FAERS Safety Report 4641778-1 (Version None)
Quarter: 2005Q2

REPORT INFORMATION
  Report Type: 
  Country: None (occurrence: None)
  Receive Date: 20050420
  Receipt Date: 20050405
  Transmission Date: 20051028
  Serious: Yes (Life-Threatening, Hospitalization, Other)
  Sender: FDA-Public Use
  Company Number: USA050494889

PATIENT
  Age: 56 Year
  Sex: Female

DRUGS (5)
  1. PROZAC [Suspect]
     Indication: DEPRESSION
     Dosage: 20 MG DAY
  2. PROZAC [Suspect]
     Indication: FIBROMYALGIA
     Dosage: 20 MG DAY
  3. VIOXX [Concomitant]
  4. BEXTRA [Concomitant]
  5. COUMADIN [Concomitant]

REACTIONS (6)
  - CARDIAC OPERATION [None]
  - COAGULOPATHY [None]
  - DIABETES MELLITUS [None]
  - HEART VALVE REPLACEMENT [None]
  - MALAISE [None]
  - RESPIRATORY ARREST [None]
